FAERS Safety Report 8863238 (Version 1)
Quarter: 2012Q4

REPORT INFORMATION
  Report Type: 
  Country: US (occurrence: US)
  Receive Date: 20121025
  Receipt Date: 20121025
  Transmission Date: 20130627
  Serious: No
  Sender: FDA-Public Use
  Company Number: US-ABBOTT-12P-163-0915756-00

PATIENT
  Sex: Female

DRUGS (1)
  1. LUPRON DEPOT 3.75 MG [Suspect]
     Indication: MENSTRUAL DISORDER
     Route: 030
     Dates: start: 20120315

REACTIONS (6)
  - Headache [Not Recovered/Not Resolved]
  - Neck pain [Not Recovered/Not Resolved]
  - Toothache [Not Recovered/Not Resolved]
  - Pain [Not Recovered/Not Resolved]
  - Nervousness [Not Recovered/Not Resolved]
  - Off label use [Unknown]
